FAERS Safety Report 5778863-7 (Version None)
Quarter: 2008Q2

REPORT INFORMATION
  Report Type: 
  Country: None (occurrence: None)
  Receive Date: 20080619
  Receipt Date: 20080610
  Transmission Date: 20081010
  Serious: Yes (Hospitalization)
  Sender: FDA-Public Use
  Company Number: US-JNJFOC-20070406548

PATIENT
  Sex: Male
  Weight: 74.84 kg

DRUGS (3)
  1. INVEGA [Suspect]
     Indication: SCHIZOPHRENIA
     Route: 048
  2. ESCITALOPRAM OXALATE [Concomitant]
  3. DEPAKOTE [Concomitant]

REACTIONS (2)
  - HYPERTENSION [None]
  - PANIC ATTACK [None]
